FAERS Safety Report 20554969 (Version 1)
Quarter: 2022Q1

REPORT INFORMATION
  Report Type: Spontaneous
  Country: SE (occurrence: SE)
  Receive Date: 20220304
  Receipt Date: 20220304
  Transmission Date: 20220423
  Serious: Yes (Hospitalization)
  Sender: FDA-Public Use
  Company Number: SE-ALLERGAN-2207485US

PATIENT
  Sex: Female

DRUGS (1)
  1. MEMANTINE [Suspect]
     Active Substance: MEMANTINE
     Indication: Dementia Alzheimer^s type
     Dosage: UNK

REACTIONS (2)
  - Vision blurred [Recovering/Resolving]
  - Dizziness [Recovering/Resolving]

NARRATIVE: CASE EVENT DATE: 20220101
